FAERS Safety Report 9182190 (Version 1)
Quarter: 2013Q1

REPORT INFORMATION
  Report Type: Spontaneous
  Country: US (occurrence: None)
  Receive Date: 20130321
  Receipt Date: 20130321
  Transmission Date: 20140127
  Serious: Yes (Life-Threatening, Hospitalization)
  Sender: FDA-Public Use
  Company Number: None

PATIENT
  Age: 66 Year
  Sex: Female

DRUGS (6)
  1. ENALAPRIL [Suspect]
     Indication: HYPERTENSION
     Dosage: YEARS OF USE
     Route: 048
  2. ENALAPRIL [Suspect]
     Indication: DIABETES MELLITUS
     Dosage: YEARS OF USE
     Route: 048
  3. INSULIN [Concomitant]
  4. ASPIRIN [Concomitant]
  5. STATIN [Concomitant]
  6. FAMOTIDINE [Concomitant]

REACTIONS (4)
  - Dyspnoea [None]
  - Odynophagia [None]
  - Dysphagia [None]
  - Pharyngeal oedema [None]
